FAERS Safety Report 9282203 (Version 3)
Quarter: 2013Q2

REPORT INFORMATION
  Report Type: Spontaneous
  Country: US (occurrence: US)
  Receive Date: 20130510
  Receipt Date: 20130618
  Transmission Date: 20140414
  Serious: No
  Sender: FDA-Public Use
  Company Number: US-PFIZER INC-2013143333

PATIENT
  Age: 34 Year
  Sex: Female
  Weight: 113 kg

DRUGS (9)
  1. LYRICA [Suspect]
     Indication: FIBROMYALGIA
     Dosage: 150 MG(75MG X 2), 2X/DAY
     Route: 048
     Dates: start: 20130418
  2. METFORMIN [Concomitant]
     Indication: DIABETES MELLITUS
     Dosage: 1000 MG, 2X/DAY
  3. DULOXETINE HYDROCHLORIDE [Concomitant]
     Indication: FIBROMYALGIA
     Dosage: 60 MG, 1X/DAY
  4. HYDROCODONE W/ACETAMINOPHEN [Concomitant]
     Dosage: 5/325 MG, 3X/DAY
  5. CYCLOBENZAPRINE [Concomitant]
     Dosage: 10 MG, 3X/DAY
  6. MELOXICAM [Concomitant]
     Dosage: 7.5 MG, 2X/DAY
  7. HYDROCHLOROTHIAZIDE [Concomitant]
     Dosage: 12.5 MG, 1X/DAY
  8. CLONIDINE [Concomitant]
     Indication: ANXIETY
     Dosage: 0.1 MG, 4X/DAY
  9. CLONAZEPAM [Concomitant]
     Dosage: 1 MG, 3X/DAY

REACTIONS (3)
  - Premenstrual syndrome [Not Recovered/Not Resolved]
  - Dysmenorrhoea [Not Recovered/Not Resolved]
  - Menstruation irregular [Not Recovered/Not Resolved]
